FAERS Safety Report 17184514 (Version 1)
Quarter: 2019Q4

REPORT INFORMATION
  Report Type: Spontaneous
  Country: US (occurrence: US)
  Receive Date: 20191220
  Receipt Date: 20191220
  Transmission Date: 20200122
  Serious: No
  Sender: FDA-Public Use
  Company Number: US-PFIZER INC-2019547145

PATIENT
  Age: 52 Year
  Sex: Female
  Weight: 83.9 kg

DRUGS (2)
  1. IBRANCE [Suspect]
     Active Substance: PALBOCICLIB
     Indication: BREAST CANCER FEMALE
     Dosage: 125 MG, CYCLIC (FOR 21 DAYS)
     Dates: start: 201905, end: 20191005
  2. FEMARA [Concomitant]
     Active Substance: LETROZOLE
     Dosage: UNK

REACTIONS (4)
  - Fatigue [Unknown]
  - Depression [Unknown]
  - White blood cell count decreased [Unknown]
  - Mental fatigue [Unknown]
